FAERS Safety Report 8644024 (Version 2)
Quarter: 2012Q4

REPORT INFORMATION
  Report Type: 
  Country: US (occurrence: US)
  Receive Date: 20120629
  Receipt Date: 20121019
  Transmission Date: 20130627
  Serious: Yes (Death, Hospitalization)
  Sender: FDA-Public Use
  Company Number: US-GLAXOSMITHKLINE-A0982633A

PATIENT
  Age: 75 Year
  Sex: Male
  Weight: 95 kg

DRUGS (8)
  1. VOTRIENT [Suspect]
     Indication: RENAL CANCER
     Dosage: 200MG See dosage text
     Route: 048
  2. ALBUTEROL [Concomitant]
     Route: 055
  3. FELODIPINE [Concomitant]
  4. GLYBURIDE [Concomitant]
  5. HYDROCHLOROTHIAZIDE [Concomitant]
  6. HYDROCODONE + ACETAMINOPHEN [Concomitant]
  7. COMPAZINE [Concomitant]
  8. SIMVASTATIN [Concomitant]

REACTIONS (15)
  - Disease progression [Fatal]
  - Aspartate aminotransferase increased [Unknown]
  - Alanine aminotransferase increased [Unknown]
  - Nausea [Unknown]
  - Vomiting [Unknown]
  - Weight decreased [Unknown]
  - Diarrhoea [Unknown]
  - Pleural effusion [Unknown]
  - Respiratory arrest [Unknown]
  - Renal cancer [Unknown]
  - Adverse event [Unknown]
  - Azotaemia [Unknown]
  - Blood creatinine increased [Unknown]
  - Pulse absent [Unknown]
  - Vital functions abnormal [Unknown]
